FAERS Safety Report 5752047-0 (Version None)
Quarter: 2008Q2

REPORT INFORMATION
  Report Type: 
  Country: None (occurrence: None)
  Receive Date: 20080527
  Receipt Date: 20080515
  Transmission Date: 20081010
  Serious: Yes (Hospitalization, Other)
  Sender: FDA-Public Use
  Company Number: 2008BI006237

PATIENT
  Age: 40 Year
  Sex: Female

DRUGS (1)
  1. TYSABRI [Suspect]
     Indication: MULTIPLE SCLEROSIS
     Dosage: 300 MG;QM;IV
     Route: 042
     Dates: start: 20080125

REACTIONS (6)
  - KIDNEY INFECTION [None]
  - PRURITUS GENERALISED [None]
  - PYELONEPHRITIS [None]
  - RASH [None]
  - STAPHYLOCOCCAL SEPSIS [None]
  - URTICARIA [None]
